FAERS Safety Report 23581888 (Version 1)
Quarter: 2024Q1

REPORT INFORMATION
  Report Type: Spontaneous
  Country: CN (occurrence: None)
  Receive Date: 20240229
  Receipt Date: 20240229
  Transmission Date: 20240410
  Serious: Yes (Hospitalization)
  Sender: FDA-Public Use
  Company Number: CN-ROCHE-3516688

PATIENT
  Age: 9 Year
  Sex: Male
  Weight: 28.5 kg

DRUGS (1)
  1. XOFLUZA [Suspect]
     Active Substance: BALOXAVIR MARBOXIL
     Indication: Febrile infection
     Route: 048
     Dates: start: 20240219, end: 20240219

REACTIONS (4)
  - Dysphonia [Recovering/Resolving]
  - Blepharitis [Recovering/Resolving]
  - Nausea [Recovered/Resolved]
  - Vomiting [Recovered/Resolved]

NARRATIVE: CASE EVENT DATE: 20240219
